FAERS Safety Report 7611928-3 (Version None)
Quarter: 2011Q3

REPORT INFORMATION
  Report Type: 
  Country: None (occurrence: None)
  Receive Date: 20110715
  Receipt Date: 20110704
  Transmission Date: 20111222
  Serious: Yes (Hospitalization)
  Sender: FDA-Public Use
  Company Number: AU-UCBSA-036473

PATIENT
  Sex: Female

DRUGS (2)
  1. KEPPRA [Suspect]
     Indication: EPILEPSY
     Route: 048
     Dates: start: 20100101, end: 20110701
  2. MAGNESIUM SUPPLEMENT [Interacting]
     Indication: SUPPLEMENTATION THERAPY
     Dates: end: 20110101

REACTIONS (3)
  - FALL [None]
  - DRUG INTERACTION [None]
  - CONVULSION [None]
